FAERS Safety Report 10238735 (Version 2)
Quarter: 2014Q3

REPORT INFORMATION
  Report Type: Spontaneous
  Country: US (occurrence: US)
  Receive Date: 20140616
  Receipt Date: 20140715
  Transmission Date: 20150326
  Serious: No
  Sender: FDA-Public Use
  Company Number: US-009507513-1406USA007928

PATIENT
  Age: 79 Year
  Sex: Female
  Weight: 86.17 kg

DRUGS (8)
  1. OXYTROL FOR WOMEN [Suspect]
     Active Substance: OXYBUTYNIN
     Indication: HYPERTONIC BLADDER
     Dosage: 1 DF, ONCE
     Route: 062
     Dates: start: 201406, end: 201406
  2. GABAPENTIN. [Concomitant]
     Active Substance: GABAPENTIN
     Indication: DIABETES MELLITUS
     Dosage: UNK, UNKNOWN
  3. DORZOLAMIDE HYDROCHLORIDE. [Concomitant]
     Active Substance: DORZOLAMIDE HYDROCHLORIDE
     Indication: GLAUCOMA
     Dosage: UNK, UNKNOWN
  4. CLONAZEPAM. [Concomitant]
     Active Substance: CLONAZEPAM
     Indication: ANXIETY
     Dosage: UNK, UNKNOWN
  5. ACETAMINOPHEN (+) HYDROCODONE BITARTRATE [Concomitant]
     Active Substance: ACETAMINOPHEN\HYDROCODONE
     Indication: ARTHRITIS
     Dosage: UNK, UNKNOWN
  6. PRAMIPEXOLE [Concomitant]
     Active Substance: PRAMIPEXOLE
     Indication: RESTLESS LEGS SYNDROME
     Dosage: UNK, UNKNOWN
  7. TIMOLOL [Concomitant]
     Active Substance: TIMOLOL
     Indication: GLAUCOMA
     Dosage: UNK, UNKNOWN
  8. LATANOPROST. [Concomitant]
     Active Substance: LATANOPROST
     Indication: GLAUCOMA
     Dosage: UNK, UNKNOWN

REACTIONS (4)
  - Erythema [Recovered/Resolved]
  - Application site pruritus [Recovered/Resolved]
  - Application site inflammation [Recovered/Resolved]
  - Off label use [Unknown]

NARRATIVE: CASE EVENT DATE: 201406
